FAERS Safety Report 16880936 (Version 21)
Quarter: 2021Q3

REPORT INFORMATION
  Report Type: Spontaneous
  Country: US (occurrence: US)
  Receive Date: 20191003
  Receipt Date: 20210716
  Transmission Date: 20211014
  Serious: Yes (Hospitalization, Other)
  Sender: FDA-Public Use
  Company Number: US-PFIZER INC-2019426277

PATIENT
  Age: 80 Year
  Sex: Female
  Weight: 63 kg

DRUGS (9)
  1. PREMARIN [Suspect]
     Active Substance: ESTROGENS, CONJUGATED
     Indication: HORMONE REPLACEMENT THERAPY
     Dosage: UNK
     Dates: start: 1980
  2. TRAMADOL. [Concomitant]
     Active Substance: TRAMADOL
     Indication: BACK PAIN
     Dosage: 150 MG, 3X/DAY
  3. PREMARIN [Suspect]
     Active Substance: ESTROGENS, CONJUGATED
     Indication: AFFECTIVE DISORDER
  4. PREMARIN [Suspect]
     Active Substance: ESTROGENS, CONJUGATED
     Indication: SLEEP DISORDER
  5. PREMARIN [Suspect]
     Active Substance: ESTROGENS, CONJUGATED
     Indication: HOT FLUSH
     Dosage: UNK (TAKING HALF)
  6. PREMARIN [Suspect]
     Active Substance: ESTROGENS, CONJUGATED
     Indication: HYSTERECTOMY
     Dosage: 6.625 MG, 1X/DAY
     Route: 048
     Dates: start: 198002
  7. LOTREL [LOTEPREDNOL ETABONATE] [Concomitant]
     Active Substance: LOTEPREDNOL ETABONATE
     Indication: BLOOD PRESSURE INCREASED
     Dosage: UNK, 1X/DAY (5/10 ONCE A NIGHT)
  8. KLONOPIN [Concomitant]
     Active Substance: CLONAZEPAM
     Indication: ANXIETY
     Dosage: 0.5 MG, DAILY
  9. VITAMIN D [COLECALCIFEROL] [Concomitant]
     Active Substance: CHOLECALCIFEROL
     Indication: VITAMIN D DECREASED
     Dosage: 1000 IU, DAILY (1,000 IU DAILY, D3 25 MCG)

REACTIONS (15)
  - Product dose omission issue [Unknown]
  - Paranoia [Unknown]
  - Confusional state [Unknown]
  - Hot flush [Unknown]
  - Malaise [Unknown]
  - Insomnia [Recovered/Resolved]
  - Feeling abnormal [Unknown]
  - Hyperhidrosis [Recovered/Resolved]
  - Crying [Unknown]
  - Joint injury [Unknown]
  - Nervousness [Unknown]
  - Condition aggravated [Unknown]
  - Intentional product misuse [Unknown]
  - Discomfort [Unknown]
  - Emotional disorder [Unknown]
